FAERS Safety Report 13264881 (Version 2)
Quarter: 2017Q1

REPORT INFORMATION
  Report Type: Spontaneous
  Country: CA (occurrence: CA)
  Receive Date: 20170223
  Receipt Date: 20170227
  Transmission Date: 20170428
  Serious: Yes (Other)
  Sender: FDA-Public Use
  Company Number: CA-BEH-2016075408

PATIENT
  Age: 56 Year
  Sex: Female

DRUGS (3)
  1. CEFOTAXIME [Concomitant]
     Active Substance: CEFOTAXIME SODIUM
     Dosage: 2 G, TID (EVERY 8 HOURS)
     Route: 042
     Dates: start: 20160401
  2. ALBUREX [Suspect]
     Active Substance: ALBUMIN HUMAN
     Indication: PERITONITIS BACTERIAL
     Dosage: 100 ML, TOT
     Route: 065
     Dates: start: 20160401, end: 20160401
  3. ALBUREX [Suspect]
     Active Substance: ALBUMIN HUMAN
     Indication: SEPSIS
     Dosage: UNK
     Route: 065
     Dates: start: 20160402

REACTIONS (10)
  - Feeling cold [Unknown]
  - Sinus tachycardia [Recovered/Resolved]
  - Pyrexia [Recovered/Resolved]
  - Blood pressure increased [Recovered/Resolved]
  - Chills [Recovered/Resolved]
  - Abdominal pain [Recovered/Resolved]
  - Cough [Unknown]
  - Dizziness [Unknown]
  - Tachypnoea [Recovered/Resolved]
  - Asthenia [Unknown]

NARRATIVE: CASE EVENT DATE: 20160402
